FAERS Safety Report 9354440 (Version 2)
Quarter: 2013Q3

REPORT INFORMATION
  Report Type: Report from Study
  Country: US (occurrence: US)
  Receive Date: 20130618
  Receipt Date: 20130701
  Transmission Date: 20140515
  Serious: Yes (Hospitalization, Other)
  Sender: FDA-Public Use
  Company Number: US-BAXTER-2013BAX022662

PATIENT
  Age: 53 Year
  Sex: Female

DRUGS (13)
  1. ARALAST NP [Suspect]
     Indication: PRODUCT USED FOR UNKNOWN INDICATION
     Route: 042
  2. LEVOTHYROXINE [Concomitant]
     Indication: THYROID DISORDER
  3. PRAVASTATIN [Concomitant]
     Indication: PRODUCT USED FOR UNKNOWN INDICATION
     Route: 048
  4. MIRTAZAPINE [Concomitant]
     Indication: DECREASED APPETITE
     Route: 048
  5. VESICARE [Concomitant]
     Indication: URINARY INCONTINENCE
     Route: 048
  6. ALPRAZOLAM [Concomitant]
     Indication: PANIC ATTACK
     Route: 048
  7. VITAMIN D [Concomitant]
     Indication: PRODUCT USED FOR UNKNOWN INDICATION
     Route: 048
  8. CALCIUM [Concomitant]
     Indication: PRODUCT USED FOR UNKNOWN INDICATION
     Route: 048
  9. MAGNESIUM [Concomitant]
     Indication: PRODUCT USED FOR UNKNOWN INDICATION
     Route: 048
  10. MUCINEX [Concomitant]
     Indication: PRODUCT USED FOR UNKNOWN INDICATION
  11. PROBIOTICS NOS [Concomitant]
     Indication: PRODUCT USED FOR UNKNOWN INDICATION
  12. SPIRIVA [Concomitant]
     Indication: PRODUCT USED FOR UNKNOWN INDICATION
  13. ADVAIR [Concomitant]
     Indication: PRODUCT USED FOR UNKNOWN INDICATION

REACTIONS (6)
  - Pulmonary mass [Recovering/Resolving]
  - Lung infection [Recovering/Resolving]
  - Chromaturia [Recovering/Resolving]
  - Diaphragmatic injury [Recovered/Resolved]
  - Pulmonary mass [Not Recovered/Not Resolved]
  - Dyspnoea [Recovered/Resolved]
